FAERS Safety Report 24443533 (Version 2)
Quarter: 2024Q4

REPORT INFORMATION
  Report Type: Report from Study
  Country: CA (occurrence: CA)
  Receive Date: 20241016
  Receipt Date: 20241017
  Transmission Date: 20250115
  Serious: No
  Sender: ROCHE
  Company Number: CA-ROCHE-2147214

PATIENT
  Age: 72 Year
  Sex: Male

DRUGS (32)
  1. RITUXAN [Suspect]
     Active Substance: RITUXIMAB
     Indication: Granulomatosis with polyangiitis
     Dosage: FREQUENCY TEXT:DAY 1, DAY 15
     Route: 042
     Dates: start: 20170511, end: 20180627
  2. RITUXAN [Suspect]
     Active Substance: RITUXIMAB
     Indication: Granulomatosis with polyangiitis
     Dosage: SINGLE INFUSION
     Route: 042
     Dates: start: 20181211, end: 20181211
  3. RITUXAN [Suspect]
     Active Substance: RITUXIMAB
     Route: 042
     Dates: start: 20200505, end: 20200505
  4. RITUXAN [Suspect]
     Active Substance: RITUXIMAB
     Dosage: SINGLE INFUSIONS, LAST INFUSION ADMINISTERED ON 09/AUG/2023.
     Route: 042
     Dates: start: 20201104
  5. RITUXAN [Suspect]
     Active Substance: RITUXIMAB
     Route: 042
  6. RITUXAN [Suspect]
     Active Substance: RITUXIMAB
     Route: 042
  7. RITUXAN [Suspect]
     Active Substance: RITUXIMAB
     Route: 042
  8. ACETAMINOPHEN [Concomitant]
     Active Substance: ACETAMINOPHEN
     Indication: Premedication
     Route: 048
     Dates: start: 20170511
  9. DIPHENHYDRAMINE HYDROCHLORIDE [Concomitant]
     Active Substance: DIPHENHYDRAMINE HYDROCHLORIDE
     Indication: Premedication
     Route: 048
     Dates: start: 20170511
  10. METHYLPREDNISOLONE [Concomitant]
     Active Substance: METHYLPREDNISOLONE
     Indication: Premedication
     Route: 042
  11. PANTOPRAZOLE [Concomitant]
     Active Substance: PANTOPRAZOLE
  12. AZATHIOPRINE [Concomitant]
     Active Substance: AZATHIOPRINE
  13. DAPSONE [Concomitant]
     Active Substance: DAPSONE
  14. ROSUVASTATIN [Concomitant]
     Active Substance: ROSUVASTATIN
  15. CALCIUM CARBONATE [Concomitant]
     Active Substance: CALCIUM CARBONATE
  16. ASPIRIN [Concomitant]
     Active Substance: ASPIRIN
  17. OLODATEROL HYDROCHLORIDE\TIOTROPIUM BROMIDE MONOHYDRATE [Concomitant]
     Active Substance: OLODATEROL HYDROCHLORIDE\TIOTROPIUM BROMIDE MONOHYDRATE
     Dosage: INSPIOLTO RESPIMAT PUFFER?ONGOING; 2 PUFFS DAILY
     Route: 067
  18. FISH OIL [Concomitant]
     Active Substance: FISH OIL
  19. OMEGA 3 [Concomitant]
     Active Substance: CAPSAICIN
  20. BISOPROLOL [Concomitant]
     Active Substance: BISOPROLOL\BISOPROLOL FUMARATE
  21. CLOPIDOGREL [Concomitant]
     Active Substance: CLOPIDOGREL BISULFATE
  22. OLODATEROL [Concomitant]
     Active Substance: OLODATEROL
  23. TYLENOL [Concomitant]
     Active Substance: ACETAMINOPHEN
  24. DAPSONE [Concomitant]
     Active Substance: DAPSONE
  25. PREDNISONE [Concomitant]
     Active Substance: PREDNISONE
  26. ASPIRIN [Concomitant]
     Active Substance: ASPIRIN
     Dosage: ONGOING
  27. IMURAN [Concomitant]
     Active Substance: AZATHIOPRINE
  28. RABEPRAZOLE SODIUM [Concomitant]
     Active Substance: RABEPRAZOLE SODIUM
  29. IRBESARTAN [Concomitant]
     Active Substance: IRBESARTAN
  30. OLODATEROL HYDROCHLORIDE\TIOTROPIUM BROMIDE MONOHYDRATE [Concomitant]
     Active Substance: OLODATEROL HYDROCHLORIDE\TIOTROPIUM BROMIDE MONOHYDRATE
  31. CALCIUM [Concomitant]
     Active Substance: CALCIUM
  32. BENADRYL [Concomitant]
     Active Substance: DIPHENHYDRAMINE HYDROCHLORIDE

REACTIONS (7)
  - Blood pressure increased [Unknown]
  - Oxygen saturation decreased [Unknown]
  - Blood pressure systolic increased [Unknown]
  - Heart rate decreased [Unknown]
  - Erythema [Unknown]
  - Peripheral swelling [Unknown]
  - Blood pressure systolic abnormal [Unknown]

NARRATIVE: CASE EVENT DATE: 20180627
